FAERS Safety Report 6026168-1 (Version None)
Quarter: 2008Q4

REPORT INFORMATION
  Report Type: 
  Country: None (occurrence: None)
  Receive Date: 20081229
  Receipt Date: 20081211
  Transmission Date: 20090506
  Serious: Yes (Hospitalization)
  Sender: FDA-Public Use
  Company Number: 8040488

PATIENT
  Age: 8 Year

DRUGS (2)
  1. EQUASYM [Suspect]
     Dosage: 10 MG 3/D
     Dates: start: 20080801
  2. EQUASYM [Suspect]
     Dates: start: 20081201

REACTIONS (3)
  - OEDEMA PERIPHERAL [None]
  - PRODUCT QUALITY ISSUE [None]
  - RASH GENERALISED [None]
